FAERS Safety Report 24666221 (Version 3)
Quarter: 2025Q1

REPORT INFORMATION
  Report Type: Spontaneous
  Country: US (occurrence: US)
  Receive Date: 20241126
  Receipt Date: 20250129
  Transmission Date: 20250408
  Serious: No
  Sender: DR REDDYS
  Company Number: US-DRL-USA-CLI/USA/24/0017160

PATIENT
  Age: 20 Month
  Sex: Female
  Weight: 12 kg

DRUGS (1)
  1. JAVYGTOR [Suspect]
     Active Substance: SAPROPTERIN DIHYDROCHLORIDE
     Indication: Phenylketonuria
     Route: 048

REACTIONS (3)
  - Rhinorrhoea [Unknown]
  - Cough [Unknown]
  - Influenza like illness [Unknown]
